FAERS Safety Report 4356618-8 (Version None)
Quarter: 2004Q2

REPORT INFORMATION
  Report Type: 
  Country: None (occurrence: None)
  Receive Date: 20040507
  Receipt Date: 20040422
  Transmission Date: 20050107
  Serious: Yes (Hospitalization)
  Sender: FDA-Public Use
  Company Number: 1997002197-FJ

PATIENT
  Age: 45 Year
  Sex: Male
  Weight: 64.5 kg

DRUGS (15)
  1. PROGRAF [Suspect]
     Dosage: SEE IMAGE
     Route: 048
     Dates: start: 19960616, end: 19960616
  2. PROGRAF [Suspect]
     Dosage: SEE IMAGE
     Route: 048
     Dates: start: 19960617, end: 19960618
  3. PROGRAF [Suspect]
     Dosage: SEE IMAGE
     Route: 048
     Dates: start: 19960619, end: 19960619
  4. PROGRAF [Suspect]
     Dosage: SEE IMAGE
     Route: 048
     Dates: start: 19960620, end: 19960620
  5. PROGRAF [Suspect]
     Dosage: SEE IMAGE
     Route: 048
     Dates: start: 19960620, end: 19960621
  6. PROGRAF [Suspect]
     Dosage: SEE IMAGE
     Route: 048
     Dates: start: 19960621, end: 19960622
  7. PROGRAF [Suspect]
     Dosage: SEE IMAGE
     Route: 048
     Dates: start: 19960622, end: 19960622
  8. PROGRAF [Suspect]
     Dosage: SEE IMAGE
     Route: 048
     Dates: start: 19960623, end: 19960627
  9. PROGRAF [Suspect]
     Dosage: SEE IMAGE
     Route: 048
     Dates: start: 19960628, end: 19960628
  10. PROGRAF [Suspect]
     Dosage: SEE IMAGE
     Route: 048
     Dates: start: 19960915, end: 19960915
  11. PROGRAF [Suspect]
     Dosage: SEE IMAGE
     Route: 048
     Dates: start: 19960616
  12. PROGRAF [Suspect]
     Dosage: SEE IMAGE
     Route: 048
     Dates: start: 19960916
  13. METHYLPREDNISOLONE [Concomitant]
  14. AZATHIOPRINE [Concomitant]
  15. CYCLOSPORINE [Concomitant]

REACTIONS (9)
  - ANAEMIA [None]
  - ANGINA PECTORIS [None]
  - BLOOD LACTATE DEHYDROGENASE INCREASED [None]
  - DIARRHOEA [None]
  - GLUCOSE URINE PRESENT [None]
  - HYPERTRIGLYCERIDAEMIA [None]
  - HYPERURICAEMIA [None]
  - NEPHROPATHY [None]
  - RENAL DISORDER [None]
